FAERS Safety Report 9861227 (Version 1)
Quarter: 2014Q1

REPORT INFORMATION
  Report Type: Other
  Country: TW (occurrence: TW)
  Receive Date: 20140202
  Receipt Date: 20140202
  Transmission Date: 20141002
  Serious: Yes (Death, Life-Threatening, Hospitalization, Other)
  Sender: FDA-Public Use
  Company Number: TW-BRISTOL-MYERS SQUIBB COMPANY-20091039

PATIENT
  Age: 89 Year
  Sex: Male

DRUGS (2)
  1. METFORMIN HCL [Suspect]
     Indication: DIABETES MELLITUS
     Route: 048
  2. GLICLAZIDE [Suspect]
     Indication: DIABETES MELLITUS
     Route: 048

REACTIONS (8)
  - Sepsis [Fatal]
  - Multi-organ failure [Fatal]
  - Renal failure acute [Unknown]
  - Lactic acidosis [Unknown]
  - Atrioventricular block complete [Unknown]
  - Dizziness [Unknown]
  - Asthenia [Unknown]
  - Dry gangrene [Unknown]
